FAERS Safety Report 7720102-1 (Version None)
Quarter: 2011Q3

REPORT INFORMATION
  Report Type: 
  Country: None (occurrence: None)
  Receive Date: 20110824
  Receipt Date: 20110812
  Transmission Date: 20111222
  Serious: Yes (Other)
  Sender: FDA-Public Use
  Company Number: EU-2011-10148

PATIENT
  Sex: Female

DRUGS (2)
  1. SAMSCA [Suspect]
     Indication: INAPPROPRIATE ANTIDIURETIC HORMONE SECRETION
     Dosage: 15 MG MILLIGRAM(S), QD, ORAL
     Route: 048
     Dates: start: 20110628, end: 20110701
  2. LEVOTHYROXINE (LEVOTHYROXINE) TABLET [Concomitant]

REACTIONS (2)
  - DYSPNOEA [None]
  - ANGIOEDEMA [None]
